FAERS Safety Report 9164205 (Version 10)
Quarter: 2015Q3

REPORT INFORMATION
  Report Type: Report from Study
  Country: US (occurrence: US)
  Receive Date: 20130315
  Receipt Date: 20150904
  Transmission Date: 20151125
  Serious: Yes (Death, Hospitalization, Other)
  Sender: FDA-Public Use
  Company Number: US-BIOGENIDEC-2013BI022713

PATIENT
  Age: 61 Year
  Sex: Male

DRUGS (3)
  1. AVONEX [Suspect]
     Active Substance: INTERFERON BETA-1A
     Indication: MULTIPLE SCLEROSIS
     Route: 030
     Dates: start: 2003, end: 20131121
  2. AVONEX [Suspect]
     Active Substance: INTERFERON BETA-1A
     Indication: MULTIPLE SCLEROSIS
     Route: 030
     Dates: start: 20131213, end: 20140717
  3. AVONEX [Suspect]
     Active Substance: INTERFERON BETA-1A
     Indication: MULTIPLE SCLEROSIS
     Route: 030
     Dates: start: 20020613, end: 2003

REACTIONS (16)
  - Post procedural complication [Recovered/Resolved]
  - Polyarthritis [Unknown]
  - Depression [Recovered/Resolved]
  - Skin cancer [Recovered/Resolved]
  - Pneumonia [Recovered/Resolved]
  - Post procedural haemorrhage [Recovered/Resolved]
  - Neoplasm malignant [Fatal]
  - Off label use [Unknown]
  - Spondylitis [Unknown]
  - Coagulation time prolonged [Recovered/Resolved]
  - Oesophageal carcinoma [Fatal]
  - Influenza like illness [Recovered/Resolved]
  - Barrett^s oesophagus [Unknown]
  - Pulmonary thrombosis [Recovered/Resolved]
  - Intestinal polyp [Recovered/Resolved]
  - Blood pressure increased [Unknown]

NARRATIVE: CASE EVENT DATE: 2002
